FAERS Safety Report 8156134-1 (Version None)
Quarter: 2012Q1

REPORT INFORMATION
  Report Type: 
  Country: None (occurrence: None)
  Receive Date: 20120222
  Receipt Date: 20120214
  Transmission Date: 20120608
  Serious: Yes (Other)
  Sender: FDA-Public Use
  Company Number: US-JNJFOC-20110200396

PATIENT
  Sex: Male

DRUGS (6)
  1. METHIMAZOLE [Suspect]
     Indication: PRODUCT USED FOR UNKNOWN INDICATION
     Route: 065
  2. RISPERDAL [Suspect]
     Indication: BIPOLAR I DISORDER
     Route: 048
  3. RISPERDAL [Suspect]
     Indication: PRODUCT USED FOR UNKNOWN INDICATION
     Route: 048
  4. ZOLOFT [Suspect]
     Indication: PRODUCT USED FOR UNKNOWN INDICATION
     Route: 065
  5. DEPAKOTE [Suspect]
     Indication: PRODUCT USED FOR UNKNOWN INDICATION
     Route: 065
  6. INDERAL [Suspect]
     Indication: PRODUCT USED FOR UNKNOWN INDICATION
     Route: 065

REACTIONS (20)
  - TOURETTE'S DISORDER [None]
  - TARDIVE DYSKINESIA [None]
  - INSOMNIA [None]
  - UNRESPONSIVE TO STIMULI [None]
  - PROSTATOMEGALY [None]
  - ANXIETY [None]
  - CONVULSION [None]
  - DEFORMITY [None]
  - GAIT DISTURBANCE [None]
  - DISTURBANCE IN SOCIAL BEHAVIOUR [None]
  - INTENTIONAL SELF-INJURY [None]
  - APHONIA [None]
  - BLADDER DILATATION [None]
  - STUPOR [None]
  - PRURITUS [None]
  - FLUSHING [None]
  - PERSONALITY CHANGE [None]
  - APHASIA [None]
  - GOITRE [None]
  - THYROID DISORDER [None]
